FAERS Safety Report 12379182 (Version 3)
Quarter: 2016Q2

REPORT INFORMATION
  Report Type: Report from Study
  Country: MX (occurrence: MX)
  Receive Date: 20160517
  Receipt Date: 20160608
  Transmission Date: 20160815
  Serious: Yes (Death)
  Sender: FDA-Public Use
  Company Number: PHHY2016MX068235

PATIENT
  Sex: Female

DRUGS (1)
  1. EXFORGE [Suspect]
     Active Substance: AMLODIPINE BESYLATE\VALSARTAN
     Indication: HYPERTENSION
     Dosage: 1 DF (AMLODIPINE 5 MG, VALSARTAN 320 MG), QD
     Route: 048

REACTIONS (7)
  - Infarction [Fatal]
  - Carotid artery occlusion [Fatal]
  - Somnolence [Unknown]
  - Insomnia [Unknown]
  - Faeces discoloured [Unknown]
  - Phlebitis [Fatal]
  - Constipation [Unknown]
